FAERS Safety Report 9153615 (Version 1)
Quarter: 2013Q1

REPORT INFORMATION
  Report Type: Spontaneous
  Country: BR (occurrence: BR)
  Receive Date: 20130311
  Receipt Date: 20130311
  Transmission Date: 20140127
  Serious: Yes (Other)
  Sender: FDA-Public Use
  Company Number: PHHY2013BR023169

PATIENT
  Age: 8 Year
  Sex: Male

DRUGS (2)
  1. TRILEPTAL [Suspect]
     Indication: PSYCHOMOTOR HYPERACTIVITY
     Dosage: 2 DF, DAILY
     Route: 048
  2. RISPERIDONE [Suspect]
     Dosage: 0.5 DF, BID

REACTIONS (1)
  - Hallucinations, mixed [Recovered/Resolved]
